FAERS Safety Report 8740294 (Version 6)
Quarter: 2014Q3

REPORT INFORMATION
  Report Type: Spontaneous
  Country: US (occurrence: US)
  Receive Date: 20120823
  Receipt Date: 20140821
  Transmission Date: 20150326
  Serious: Yes (Hospitalization, Disabling, Other)
  Sender: FDA-Public Use
  Company Number: US-009507513-1208USA002606

PATIENT
  Sex: Female
  Weight: 158.28 kg

DRUGS (1)
  1. NUVARING [Suspect]
     Active Substance: ETHINYL ESTRADIOL\ETONOGESTREL
     Indication: CONTRACEPTION
     Dosage: UNK
     Route: 067
     Dates: start: 200510, end: 20110206

REACTIONS (32)
  - Abortion spontaneous [Unknown]
  - Papule [Unknown]
  - Mitral valve incompetence [Unknown]
  - Anticoagulation drug level below therapeutic [Unknown]
  - Pain in extremity [Unknown]
  - Fatigue [Unknown]
  - Migraine [Not Recovered/Not Resolved]
  - Sleep apnoea syndrome [Unknown]
  - Heart rate irregular [Unknown]
  - Rash [Unknown]
  - Deep vein thrombosis [Unknown]
  - Deep vein thrombosis [Unknown]
  - Back pain [Not Recovered/Not Resolved]
  - Coagulation factor VIII level increased [Unknown]
  - Depression [Unknown]
  - Pain in extremity [Unknown]
  - Hypokalaemia [Unknown]
  - Musculoskeletal discomfort [Unknown]
  - Rhinitis allergic [Unknown]
  - Muscle spasms [Unknown]
  - Intervertebral disc operation [Unknown]
  - Hyperlipidaemia [Unknown]
  - Obesity [Unknown]
  - Tricuspid valve incompetence [Unknown]
  - Paranasal cyst [Unknown]
  - Anxiety [Unknown]
  - Panic attack [Unknown]
  - Intervertebral disc protrusion [Unknown]
  - Pulmonary valve incompetence [Unknown]
  - Oedema peripheral [Unknown]
  - Abscess [Unknown]
  - Arthritis [Unknown]

NARRATIVE: CASE EVENT DATE: 2006
